FAERS Safety Report 22928421 (Version 2)
Quarter: 2025Q1

REPORT INFORMATION
  Report Type: Spontaneous
  Country: ES (occurrence: ES)
  Receive Date: 20230911
  Receipt Date: 20250310
  Transmission Date: 20250408
  Serious: Yes (Hospitalization, Other)
  Sender: SANOFI AVENTIS
  Company Number: None

PATIENT
  Age: 42 Year
  Sex: Male

DRUGS (14)
  1. DUPIXENT [Suspect]
     Active Substance: DUPILUMAB
     Indication: Asthma
     Dosage: 300 MG, QOW
     Route: 058
     Dates: start: 20220401, end: 20230819
  2. NASACORT [Concomitant]
     Active Substance: TRIAMCINOLONE ACETONIDE
     Dosage: 220 UG, QD
     Route: 045
     Dates: start: 20200302
  3. MONTELUKAST CINFA [Concomitant]
     Dosage: 10 MG, QD
     Route: 048
     Dates: start: 20191030
  4. FOSTER [Concomitant]
     Active Substance: BECLOMETHASONE\FORMOTEROL
     Dosage: 2 DF, TID
     Route: 055
     Dates: start: 20190912
  5. ASPIRIN [Concomitant]
     Active Substance: ASPIRIN
     Dosage: 100 MG, QD
     Route: 048
     Dates: start: 20170102
  6. GREGAL [Concomitant]
     Dosage: 100 UG, QD
     Route: 055
     Dates: start: 20191030
  7. ATORVASTATIN [Concomitant]
     Active Substance: ATORVASTATIN
     Dosage: 80 MG, QD
     Route: 048
     Dates: start: 20170912
  8. CETIRIZINE [Concomitant]
     Active Substance: CETIRIZINE HYDROCHLORIDE
     Dosage: 10 MG, QD
     Route: 048
     Dates: start: 20190628
  9. PANTOPRAZOLE [Concomitant]
     Active Substance: PANTOPRAZOLE
     Dates: start: 202301
  10. DAPAGLIFLOZIN [Concomitant]
     Active Substance: DAPAGLIFLOZIN
     Dates: start: 202301
  11. REPAGLINIDE [Concomitant]
     Active Substance: REPAGLINIDE
     Dates: start: 202308
  12. ASPIRIN [Concomitant]
     Active Substance: ASPIRIN
     Dates: start: 201701
  13. AMLODIPINE [Concomitant]
     Active Substance: AMLODIPINE BESYLATE
     Dates: start: 202209
  14. NITROGLYCERIN [Concomitant]
     Active Substance: NITROGLYCERIN

REACTIONS (2)
  - Loeffler^s syndrome [Recovering/Resolving]
  - Restrictive cardiomyopathy [Recovering/Resolving]

NARRATIVE: CASE EVENT DATE: 20230817
